FAERS Safety Report 8812209 (Version 1)
Quarter: 2012Q4

REPORT INFORMATION
  Report Type: 
  Country: US (occurrence: US)
  Receive Date: 20120927
  Receipt Date: 20120927
  Transmission Date: 20130627
  Serious: Yes (Other)
  Sender: FDA-Public Use
  Company Number: US-ROCHE-1126202

PATIENT
  Sex: Female

DRUGS (4)
  1. AVASTIN [Suspect]
     Indication: BREAST CANCER FEMALE
     Route: 065
  2. XELODA [Suspect]
     Indication: BREAST CANCER FEMALE
     Route: 065
  3. ARIMIDEX [Concomitant]
     Route: 065
     Dates: start: 200508
  4. ZOMETA [Concomitant]

REACTIONS (3)
  - Metastases to bone [Unknown]
  - Nausea [Unknown]
  - Pain [Unknown]
